FAERS Safety Report 5327775-1 (Version None)
Quarter: 2007Q2

REPORT INFORMATION
  Report Type: 
  Country: None (occurrence: None)
  Receive Date: 20070226
  Receipt Date: 20060120
  Transmission Date: 20071010
  Serious: Yes (Hospitalization)
  Sender: FDA-Public Use
  Company Number: DSA_27699_2006

PATIENT
  Age: 59 Year
  Sex: Female
  Weight: 72.5755 kg

DRUGS (8)
  1. VASOTEC [Suspect]
     Dosage: DF PO
     Dates: end: 19990419
  2. MAXZIDE [Concomitant]
  3. NORVASC [Concomitant]
  4. PEPCID [Concomitant]
  5. PREMARIN [Concomitant]
  6. TICLID [Concomitant]
  7. ZOCOR [Concomitant]
  8. HYDROCHLOROTHIAZIDE + TRIAMTERENCE [Concomitant]

REACTIONS (1)
  - ANGIOEDEMA [None]
